FAERS Safety Report 5165930-4 (Version None)
Quarter: 2006Q4

REPORT INFORMATION
  Report Type: 
  Country: None (occurrence: None)
  Receive Date: 20061206
  Receipt Date: 19991027
  Transmission Date: 20070319
  Serious: Yes (Hospitalization)
  Sender: FDA-Public Use
  Company Number: FR-BOEHRINGER INGELHEIM PHARMACEUTICALS, INC.-1999-FF-S1630

PATIENT
  Sex: Female
  Weight: 3.2 kg

DRUGS (10)
  1. VIRAMUNE [Suspect]
     Indication: PROPHYLAXIS AGAINST HIV INFECTION
     Route: 048
     Dates: start: 19990913, end: 19990913
  2. VIRAMUNE [Suspect]
     Route: 064
     Dates: start: 19990909, end: 19990909
  3. RETROVIR [Concomitant]
     Indication: PROPHYLAXIS AGAINST HIV INFECTION
     Route: 048
     Dates: start: 19990912
  4. VIDEX [Concomitant]
     Indication: HIV INFECTION
     Route: 064
     Dates: end: 19990909
  5. INVIRASE [Concomitant]
     Indication: HIV INFECTION
     Route: 064
  6. SUSTIVA [Concomitant]
     Indication: HIV INFECTION
     Route: 064
  7. ZERIT [Concomitant]
     Indication: HIV INFECTION
     Route: 064
  8. NORVIR [Concomitant]
     Indication: HIV INFECTION
     Route: 064
  9. RETROVIR [Concomitant]
     Indication: HIV INFECTION
     Route: 064
  10. RETROVIR [Concomitant]
     Route: 064
     Dates: start: 19990909, end: 19990909

REACTIONS (13)
  - ANAEMIA [None]
  - BLOOD LACTIC ACID INCREASED [None]
  - DRUG EXPOSURE DURING PREGNANCY [None]
  - HERPES ZOSTER [None]
  - HYPERTRIGLYCERIDAEMIA [None]
  - HYPOTONIA NEONATAL [None]
  - MATERNAL CONDITION AFFECTING FOETUS [None]
  - NEONATAL DISORDER [None]
  - NEUTROPENIA [None]
  - OBESITY [None]
  - POLYHYDRAMNIOS [None]
  - SUPRAVENTRICULAR TACHYCARDIA [None]
  - TACHYCARDIA FOETAL [None]
